FAERS Safety Report 23433760 (Version 3)
Quarter: 2024Q1

REPORT INFORMATION
  Report Type: Report from Study
  Country: CA (occurrence: CA)
  Receive Date: 20240123
  Receipt Date: 20240217
  Transmission Date: 20240410
  Serious: Yes (Other)
  Sender: FDA-Public Use
  Company Number: CA-ABBVIE-5596056

PATIENT
  Age: 54 Year
  Sex: Female

DRUGS (2)
  1. SKYRIZI [Suspect]
     Active Substance: RISANKIZUMAB-RZAA
     Indication: Crohn^s disease
     Dosage: LAST ADMIN DATE JAN 2024
     Route: 042
     Dates: start: 20240111
  2. SKYRIZI [Suspect]
     Active Substance: RISANKIZUMAB-RZAA
     Indication: Crohn^s disease
     Route: 042

REACTIONS (11)
  - Visual impairment [Recovered/Resolved]
  - Balance disorder [Unknown]
  - Dizziness [Unknown]
  - Hypoaesthesia eye [Recovered/Resolved]
  - Asthenia [Recovered/Resolved]
  - Vision blurred [Unknown]
  - Presyncope [Unknown]
  - Optic nerve injury [Unknown]
  - Visual impairment [Unknown]
  - Nausea [Unknown]
  - Asthenia [Unknown]

NARRATIVE: CASE EVENT DATE: 20240101
